FAERS Safety Report 6730498-5 (Version None)
Quarter: 2010Q2

REPORT INFORMATION
  Report Type: 
  Country: None (occurrence: None)
  Receive Date: 20100518
  Receipt Date: 20100505
  Transmission Date: 20101027
  Serious: Yes (Death, Other)
  Sender: FDA-Public Use
  Company Number: DE-ROCHE-703287

PATIENT
  Sex: Female

DRUGS (6)
  1. AVASTIN [Suspect]
     Route: 042
     Dates: start: 20100119, end: 20100401
  2. PACLITAXEL [Suspect]
     Route: 042
     Dates: start: 20100308, end: 20100401
  3. DOCETAXEL [Suspect]
     Route: 042
     Dates: start: 20100119, end: 20100308
  4. DEXAMETHASONE TAB [Concomitant]
     Dosage: D 1-3, Q1W, APPLICATION: I.V. AND ORAL AS SUPPORTIVE THERAPY
     Dates: start: 20100119, end: 20100418
  5. FENISTIL [Concomitant]
     Dosage: D 1-3, Q1W, APPLICATION AS SUPPORTIVE THERAPY
     Route: 042
     Dates: start: 20100308, end: 20100418
  6. RANITIC [Concomitant]
     Dosage: D 1-3, Q1W, APPLICATION AS SUPPORTIVE THERAPY
     Route: 042
     Dates: start: 20100308, end: 20100418

REACTIONS (7)
  - BREAST CANCER FEMALE [None]
  - EXFOLIATIVE RASH [None]
  - GENERAL PHYSICAL HEALTH DETERIORATION [None]
  - GENITAL RASH [None]
  - MALIGNANT NEOPLASM PROGRESSION [None]
  - RASH [None]
  - SKIN HYPERPIGMENTATION [None]
